FAERS Safety Report 11720475 (Version 1)
Quarter: 2015Q4

REPORT INFORMATION
  Report Type: Spontaneous
  Country: US (occurrence: US)
  Receive Date: 20151110
  Receipt Date: 20151110
  Transmission Date: 20160304
  Serious: No
  Sender: FDA-Public Use
  Company Number: US-CREALTA PHARMACEUTICALS-2015S1000016

PATIENT
  Sex: Male
  Weight: 127.12 kg

DRUGS (4)
  1. KRYSTEXXA [Suspect]
     Active Substance: PEGLOTICASE
     Route: 042
     Dates: start: 2015, end: 2015
  2. KRYSTEXXA [Suspect]
     Active Substance: PEGLOTICASE
     Indication: GOUT
     Route: 042
     Dates: start: 201502, end: 201502
  3. KRYSTEXXA [Suspect]
     Active Substance: PEGLOTICASE
     Indication: GOUTY TOPHUS
     Route: 042
     Dates: start: 2015, end: 2015
  4. KRYSTEXXA [Suspect]
     Active Substance: PEGLOTICASE
     Route: 042
     Dates: start: 2015, end: 2015

REACTIONS (6)
  - Myalgia [Unknown]
  - Hyperhidrosis [Unknown]
  - Lacrimation increased [Unknown]
  - Eye pruritus [Unknown]
  - Fatigue [Unknown]
  - Gout [Unknown]

NARRATIVE: CASE EVENT DATE: 2015
